FAERS Safety Report 11126493 (Version 1)
Quarter: 2015Q2

REPORT INFORMATION
  Report Type: Spontaneous
  Country: US (occurrence: None)
  Receive Date: 20150501
  Receipt Date: 20150501
  Transmission Date: 20150821
  Serious: Yes (Death, Hospitalization)
  Sender: FDA-Public Use
  Company Number: GAM-110-15-US

PATIENT
  Age: 66 Year
  Sex: Female
  Weight: 60 kg

DRUGS (9)
  1. ROSUVASTATIN [Concomitant]
     Active Substance: ROSUVASTATIN
  2. DULOXETINE [Concomitant]
     Active Substance: DULOXETINE
  3. OCTAGAM IMMUNE GLOBULIN (HUMAN) [Suspect]
     Active Substance: HUMAN IMMUNOGLOBULIN G
     Indication: IMMUNODEFICIENCY COMMON VARIABLE
     Dosage: 60 G (1 X 3/ WEEKS)
     Route: 042
     Dates: start: 20150306, end: 20150306
  4. TIOTROPIUM BROMIDE [Concomitant]
     Active Substance: TIOTROPIUM BROMIDE
  5. BUPROPION [Concomitant]
     Active Substance: BUPROPION
  6. AZELASTINE [Concomitant]
     Active Substance: AZELASTINE
  7. POTASSIUM CHLORIDE. [Concomitant]
     Active Substance: POTASSIUM CHLORIDE
  8. FUROSEMIDE. [Concomitant]
     Active Substance: FUROSEMIDE
  9. DIPHENHYDRAMINE [Concomitant]
     Active Substance: DIPHENHYDRAMINE

REACTIONS (10)
  - Treatment noncompliance [None]
  - Breast pain [None]
  - Respiratory distress [None]
  - Haematocrit decreased [None]
  - Cardiac failure congestive [None]
  - Pneumonia [None]
  - Cardiac arrest [None]
  - Myocardial infarction [None]
  - Haemoglobin decreased [None]
  - Pain in extremity [None]

NARRATIVE: CASE EVENT DATE: 20150307
